FAERS Safety Report 7070053-3 (Version None)
Quarter: 2010Q4

REPORT INFORMATION
  Report Type: 
  Country: None (occurrence: None)
  Receive Date: 20101028
  Receipt Date: 20100818
  Transmission Date: 20110411
  Serious: No
  Sender: FDA-Public Use
  Company Number: US-WYE-H17065710

PATIENT
  Age: 70 Year
  Sex: Female
  Weight: 74.91 kg

DRUGS (1)
  1. ADVIL [Suspect]
     Indication: ARTHRALGIA
     Dosage: 2 LIQUI-GELS AT NIGHT AND 1 TWICE A DAY
     Route: 048
     Dates: start: 20100801, end: 20100817

REACTIONS (1)
  - UNEVALUABLE EVENT [None]
